FAERS Safety Report 22129637 (Version 1)
Quarter: 2023Q1

REPORT INFORMATION
  Report Type: Spontaneous
  Country: JP (occurrence: JP)
  Receive Date: 20230323
  Receipt Date: 20230323
  Transmission Date: 20230418
  Serious: Yes (Other)
  Sender: FDA-Public Use
  Company Number: JP-002147023-NVSJ2023JP004840

PATIENT
  Age: 46 Year
  Sex: Female

DRUGS (2)
  1. AFINITOR [Suspect]
     Active Substance: EVEROLIMUS
     Indication: Breast cancer
     Dosage: UNK
     Route: 048
  2. AFINITOR [Suspect]
     Active Substance: EVEROLIMUS
     Dosage: UNK
     Route: 048

REACTIONS (4)
  - Feeding disorder [Unknown]
  - Nausea [Unknown]
  - Vomiting [Not Recovered/Not Resolved]
  - Stomatitis [Unknown]
